FAERS Safety Report 9725095 (Version 2)
Quarter: 2013Q4

REPORT INFORMATION
  Report Type: Spontaneous
  Country: US (occurrence: US)
  Receive Date: 20131203
  Receipt Date: 20131212
  Transmission Date: 20140711
  Serious: Yes (Hospitalization)
  Sender: FDA-Public Use
  Company Number: US-BIOGENIDEC-2013BI113973

PATIENT
  Age: 52 Year
  Sex: Female

DRUGS (11)
  1. TECFIDERA [Suspect]
     Indication: PRODUCT USED FOR UNKNOWN INDICATION
     Route: 048
  2. MACROBID [Concomitant]
     Route: 048
  3. VITAMIN D [Concomitant]
     Route: 048
  4. ASPIRIN EC [Concomitant]
     Route: 048
  5. LEVOTHYROXIN [Concomitant]
     Route: 048
  6. LISINOPRIL [Concomitant]
     Route: 048
  7. NORTRIPTYLIN [Concomitant]
     Route: 048
  8. TIMOLOL MAL SOL [Concomitant]
  9. AZELASTINE [Concomitant]
  10. NEXIUM [Concomitant]
     Route: 048
  11. SEROQUEL [Concomitant]
     Route: 048

REACTIONS (1)
  - Migraine [Unknown]
